FAERS Safety Report 15425752 (Version 3)
Quarter: 2019Q2

REPORT INFORMATION
  Report Type: Spontaneous
  Country: DE (occurrence: DE)
  Receive Date: 20180925
  Receipt Date: 20190611
  Transmission Date: 20190711
  Serious: Yes (Other)
  Sender: FDA-Public Use
  Company Number: DE-MYLANLABS-2018M1069593

PATIENT
  Age: 17 Year
  Sex: Female

DRUGS (4)
  1. METHOTREXATE. [Suspect]
     Active Substance: METHOTREXATE
     Indication: JUVENILE IDIOPATHIC ARTHRITIS
     Dosage: UNK
     Route: 065
  2. CICLOSPORIN [Concomitant]
     Active Substance: CYCLOSPORINE
     Indication: PRODUCT USED FOR UNKNOWN INDICATION
     Dosage: UNK
     Route: 065
  3. ENBREL [Suspect]
     Active Substance: ETANERCEPT
     Indication: JUVENILE IDIOPATHIC ARTHRITIS
     Dosage: UNK
     Route: 065
  4. AZATHIOPRINE. [Suspect]
     Active Substance: AZATHIOPRINE
     Indication: JUVENILE IDIOPATHIC ARTHRITIS
     Dosage: UNK
     Route: 065

REACTIONS (3)
  - Arthritis [Unknown]
  - Myelodysplastic syndrome [Recovered/Resolved]
  - Pancytopenia [Recovered/Resolved]
